FAERS Safety Report 4909099-7 (Version None)
Quarter: 2006Q1

REPORT INFORMATION
  Report Type: 
  Country: None (occurrence: None)
  Receive Date: 20060210
  Receipt Date: 20060210
  Transmission Date: 20060701
  Serious: Yes (Hospitalization)
  Sender: FDA-Public Use
  Company Number: None

PATIENT
  Age: 37 Year
  Sex: Female
  Weight: 54.4316 kg

DRUGS (1)
  1. HISTACOL TAB [Suspect]
     Indication: HYPERSENSITIVITY
     Dosage: 1 PILL ONCE AT NIGHT PO
     Route: 048
     Dates: start: 20050615, end: 20060125

REACTIONS (10)
  - BLOOD PRESSURE INCREASED [None]
  - DRY MOUTH [None]
  - DYSARTHRIA [None]
  - DYSPHAGIA [None]
  - DYSURIA [None]
  - HEART RATE INCREASED [None]
  - MOVEMENT DISORDER [None]
  - MYDRIASIS [None]
  - OVERDOSE [None]
  - VISION BLURRED [None]
